FAERS Safety Report 11777159 (Version 2)
Quarter: 2016Q1

REPORT INFORMATION
  Report Type: Spontaneous
  Country: US (occurrence: US)
  Receive Date: 20151125
  Receipt Date: 20160112
  Transmission Date: 20160525
  Serious: No
  Sender: FDA-Public Use
  Company Number: US-PFIZER INC-2015388506

PATIENT
  Age: 59 Year
  Sex: Female
  Weight: 85.26 kg

DRUGS (8)
  1. LYRICA [Suspect]
     Active Substance: PREGABALIN
     Dosage: 75 MG, 2X/DAY
     Route: 048
  2. LEVEMIR [Concomitant]
     Active Substance: INSULIN DETEMIR
     Dosage: 3 ML, 1X/DAY
     Route: 058
  3. HYDROCODONE AND ACETAMINOPHEN [Concomitant]
     Active Substance: ACETAMINOPHEN\HYDROCODONE
     Dosage: HYDROCODONE 5 MG-ACETAMINOPHEN 325 MG 2 TABLET EVERY 4 TO 6 HOURS
     Route: 048
  4. CYCLOBENZAPRINE [Concomitant]
     Active Substance: CYCLOBENZAPRINE
     Dosage: 10 MG, 3X/DAY
     Route: 048
  5. GLUCOPHAGE [Concomitant]
     Active Substance: METFORMIN HYDROCHLORIDE
     Dosage: 1000 MG, 2X/DAY
     Route: 048
  6. TRAMADOL. [Concomitant]
     Active Substance: TRAMADOL
     Dosage: 50 MG 1 OR 2 TABLET BY ORAL ROUTE EVERY 4 TO 6 HOURS
     Route: 048
  7. LYRICA [Suspect]
     Active Substance: PREGABALIN
     Dosage: 150 MG, 2X/DAY
     Route: 048
  8. CELEXA [Concomitant]
     Active Substance: CITALOPRAM HYDROBROMIDE
     Dosage: 20 MG, 1X/DAY
     Route: 048

REACTIONS (36)
  - Dizziness [Unknown]
  - Joint range of motion decreased [Unknown]
  - Blood pressure increased [Unknown]
  - Muscle spasms [Unknown]
  - Hypoaesthesia [Unknown]
  - Vision blurred [Unknown]
  - Dysphagia [Unknown]
  - Muscular weakness [Unknown]
  - Memory impairment [Unknown]
  - Arthralgia [Unknown]
  - Myofascial pain syndrome [Unknown]
  - Pain in extremity [Unknown]
  - Nausea [Unknown]
  - Libido disorder [Unknown]
  - Pollakiuria [Unknown]
  - Paraesthesia [Unknown]
  - Neck pain [Unknown]
  - Myalgia [Unknown]
  - Sinus headache [Unknown]
  - Gait disturbance [Unknown]
  - Pain [Unknown]
  - Diplopia [Unknown]
  - Hyperhidrosis [Unknown]
  - Anxiety [Unknown]
  - Sleep disorder [Unknown]
  - Spinal osteoarthritis [Unknown]
  - Abdominal pain [Unknown]
  - Increased tendency to bruise [Unknown]
  - Radicular pain [Unknown]
  - Burning sensation [Unknown]
  - Fibromyalgia [Unknown]
  - Nervousness [Unknown]
  - Peripheral swelling [Unknown]
  - Amnesia [Unknown]
  - Back pain [Unknown]
  - Intervertebral disc degeneration [Unknown]
